FAERS Safety Report 5996325-9 (Version None)
Quarter: 2008Q4

REPORT INFORMATION
  Report Type: 
  Country: None (occurrence: None)
  Receive Date: 20081212
  Receipt Date: 20081204
  Transmission Date: 20090506
  Serious: Yes (Death)
  Sender: FDA-Public Use
  Company Number: US-AMGEN-QUU319929

PATIENT
  Sex: Male
  Weight: 76.7 kg

DRUGS (10)
  1. ENBREL [Suspect]
     Indication: ANKYLOSING SPONDYLITIS
     Route: 058
     Dates: start: 20080401, end: 20081118
  2. DOXAZOSIN MESYLATE [Concomitant]
  3. OXYFAST [Concomitant]
  4. OXYCONTIN [Concomitant]
  5. IBUPROFEN [Concomitant]
  6. CLONAZEPAM [Concomitant]
  7. POLYETHYLENE GLYCOL [Concomitant]
  8. UNSPECIFIED MEDICATION [Concomitant]
  9. LORAZEPAM [Concomitant]
  10. ACTRON - OLD FORM [Concomitant]

REACTIONS (1)
  - SUDDEN DEATH [None]
